FAERS Safety Report 7601010-3 (Version None)
Quarter: 2011Q3

REPORT INFORMATION
  Report Type: 
  Country: None (occurrence: None)
  Receive Date: 20110711
  Receipt Date: 20110630
  Transmission Date: 20111222
  Serious: Yes (Death)
  Sender: FDA-Public Use
  Company Number: US-GLAXOSMITHKLINE-A0932109A

PATIENT
  Age: 37 Year
  Sex: Male

DRUGS (2)
  1. PROMACTA [Suspect]
     Indication: IDIOPATHIC THROMBOCYTOPENIC PURPURA
     Dosage: 50MG PER DAY
     Route: 048
     Dates: start: 20110607, end: 20110614
  2. RITUXIMAB [Concomitant]
     Indication: IDIOPATHIC THROMBOCYTOPENIC PURPURA
     Dates: start: 20110101, end: 20110602

REACTIONS (2)
  - PULMONARY HYPERTENSION [None]
  - RIGHT VENTRICULAR FAILURE [None]
